FAERS Safety Report 25670356 (Version 1)
Quarter: 2025Q3

REPORT INFORMATION
  Report Type: Spontaneous
  Country: US (occurrence: US)
  Receive Date: 20250812
  Receipt Date: 20250812
  Transmission Date: 20251021
  Serious: No
  Sender: PFIZER
  Company Number: US-PFIZER INC-202500160553

PATIENT
  Age: 71 Year
  Sex: Female

DRUGS (3)
  1. IBRANCE [Suspect]
     Active Substance: PALBOCICLIB
     Dates: end: 20250618
  2. XGEVA [Concomitant]
     Active Substance: DENOSUMAB
  3. FEMARA [Concomitant]
     Active Substance: LETROZOLE

REACTIONS (2)
  - Skin lesion [Recovering/Resolving]
  - Infection [Recovering/Resolving]
